FAERS Safety Report 7954006-6 (Version None)
Quarter: 2011Q4

REPORT INFORMATION
  Report Type: 
  Country: None (occurrence: None)
  Receive Date: 20111202
  Receipt Date: 20111202
  Transmission Date: 20120403
  Serious: Yes (Other)
  Sender: FDA-Public Use
  Company Number: None

PATIENT
  Age: 54 Year
  Sex: Female
  Weight: 58.967 kg

DRUGS (1)
  1. CIPROFLOXACIN HCL [Suspect]
     Indication: URINARY TRACT INFECTION
     Dosage: 1
     Dates: start: 20111116, end: 20111120

REACTIONS (5)
  - RASH PRURITIC [None]
  - FATIGUE [None]
  - INCISION SITE COMPLICATION [None]
  - HERPES ZOSTER OPHTHALMIC [None]
  - DIZZINESS [None]
